FAERS Safety Report 24692949 (Version 1)
Quarter: 2024Q4

REPORT INFORMATION
  Report Type: Spontaneous
  Country: ES (occurrence: ES)
  Receive Date: 20241203
  Receipt Date: 20241203
  Transmission Date: 20250115
  Serious: Yes (Hospitalization, Other)
  Sender: BRISTOL-MYERS SQUIBB COMPANY
  Company Number: None

PATIENT
  Age: 88 Year
  Sex: Female
  Weight: 79.7 kg

DRUGS (8)
  1. OPDIVO [Suspect]
     Active Substance: NIVOLUMAB
     Indication: Malignant melanoma of sites other than skin
     Dosage: 75
     Route: 042
     Dates: start: 20241030, end: 20241030
  2. YERVOY [Suspect]
     Active Substance: IPILIMUMAB
     Indication: Malignant melanoma of sites other than skin
     Dosage: 225
     Route: 042
     Dates: start: 20241030, end: 20241030
  3. PANTOPRAZOLE SODIUM [Concomitant]
     Active Substance: PANTOPRAZOLE SODIUM
     Indication: Chronic disease
     Route: 048
     Dates: start: 20240601
  4. ASPIRIN [Concomitant]
     Active Substance: ASPIRIN
     Indication: Coronary revascularisation
     Dosage: 1 TABLET PER DAY
     Route: 048
     Dates: start: 20051110
  5. ATORVASTATINA ABEX [Concomitant]
     Indication: Carotid revascularisation
     Dosage: 1 TABLET PER DAY
     Route: 048
     Dates: start: 20051110
  6. TENORMIN [Concomitant]
     Active Substance: ATENOLOL
     Indication: Hypertension
     Dosage: 2 TABLETS PER DAY
     Route: 048
     Dates: start: 20240409
  7. CANRENOATE POTASSIUM [Concomitant]
     Active Substance: CANRENOATE POTASSIUM
     Indication: Hypertension
     Dosage: 1 MATCH DAY
     Route: 048
     Dates: start: 20240417
  8. LORAZEPAM [Concomitant]
     Active Substance: LORAZEPAM
     Indication: Anxiety
     Dosage: IF NECESSARY DUE TO ANXIETY
     Route: 048
     Dates: start: 20071120

REACTIONS (2)
  - Stevens-Johnson syndrome [Recovering/Resolving]
  - Off label use [Unknown]

NARRATIVE: CASE EVENT DATE: 20241114
